FAERS Safety Report 16738973 (Version 2)
Quarter: 2019Q3

REPORT INFORMATION
  Report Type: Spontaneous
  Country: JP (occurrence: JP)
  Receive Date: 20190826
  Receipt Date: 20190905
  Transmission Date: 20191005
  Serious: Yes (Death, Hospitalization, Other)
  Sender: FDA-Public Use
  Company Number: JP-CELLTRION INC.-2019JP024069

PATIENT

DRUGS (6)
  1. INFLIXIMAB (UNKNOWN) [Suspect]
     Active Substance: INFLIXIMAB
     Dosage: 5 MG/KG, EVERY 6 WEEKS
  2. ADALIMUMAB [Suspect]
     Active Substance: ADALIMUMAB
     Indication: CROHN^S DISEASE
  3. AZATHIOPRINE. [Concomitant]
     Active Substance: AZATHIOPRINE
     Indication: CROHN^S DISEASE
     Dosage: 100 MG/DAY
  4. INFLIXIMAB (UNKNOWN) [Suspect]
     Active Substance: INFLIXIMAB
     Dosage: 5 MG/KG, EVERY 8 WEEKS
  5. INFLIXIMAB (UNKNOWN) [Suspect]
     Active Substance: INFLIXIMAB
     Dosage: 10 MG/KG
  6. INFLIXIMAB (UNKNOWN) [Suspect]
     Active Substance: INFLIXIMAB
     Indication: CROHN^S DISEASE
     Dosage: 5 MG/KG (INDUCTION THERAPY)

REACTIONS (11)
  - Non-Hodgkin^s lymphoma [Fatal]
  - Epstein-Barr virus infection [Unknown]
  - Fistula of small intestine [Unknown]
  - Product use issue [Unknown]
  - Anal abscess [Unknown]
  - Epstein-Barr virus associated lymphoma [Fatal]
  - Diffuse large B-cell lymphoma stage IV [Fatal]
  - Small intestinal perforation [Unknown]
  - Overdose [Unknown]
  - Epstein Barr virus positive mucocutaneous ulcer [Fatal]
  - Drug ineffective [Unknown]
